FAERS Safety Report 5664183-8 (Version None)
Quarter: 2008Q1

REPORT INFORMATION
  Report Type: 
  Country: None (occurrence: None)
  Receive Date: 20080312
  Receipt Date: 20080229
  Transmission Date: 20080703
  Serious: Yes (Hospitalization)
  Sender: FDA-Public Use
  Company Number: 2008S1000225

PATIENT
  Age: 90 Year
  Sex: Female
  Weight: 52.2 kg

DRUGS (3)
  1. DARVOCET-N [Suspect]
  2. RANIBIZUMAB [Suspect]
     Indication: MACULAR DEGENERATION
  3. EXCEDRIN (MIGRAINE) [Concomitant]

REACTIONS (18)
  - ATELECTASIS [None]
  - BLOOD CHLORIDE DECREASED [None]
  - BLOOD SODIUM DECREASED [None]
  - BLOOD UREA INCREASED [None]
  - CHOLELITHIASIS [None]
  - CONFUSIONAL STATE [None]
  - CYSTITIS KLEBSIELLA [None]
  - DEPRESSED LEVEL OF CONSCIOUSNESS [None]
  - DRUG LEVEL INCREASED [None]
  - DRUG TOXICITY [None]
  - FALL [None]
  - FATIGUE [None]
  - LETHARGY [None]
  - LIVER FUNCTION TEST ABNORMAL [None]
  - LUNG INFILTRATION [None]
  - MENTAL STATUS CHANGES [None]
  - PNEUMONIA [None]
  - SOMNOLENCE [None]
